FAERS Safety Report 9312736 (Version 1)
Quarter: 2013Q2

REPORT INFORMATION
  Report Type: Spontaneous
  Country: FR (occurrence: FR)
  Receive Date: 20130528
  Receipt Date: 20130528
  Transmission Date: 20140414
  Serious: Yes (Hospitalization)
  Sender: FDA-Public Use
  Company Number: FR-PFIZER INC-FR-WYE-G00397507

PATIENT
  Age: 53 Year
  Sex: Female

DRUGS (5)
  1. EFFEXOR LP [Suspect]
     Indication: DEPRESSION
     Dosage: UNK
     Route: 048
  2. LEXOMIL [Suspect]
     Indication: ANXIETY
     Dosage: UNK
     Route: 048
  3. OXYCONTIN [Suspect]
     Indication: PAIN
     Dosage: UNK
     Route: 048
  4. ATARAX [Suspect]
     Indication: ANXIETY
     Dosage: UNK
     Route: 048
  5. RIVOTRIL [Suspect]
     Indication: NEURALGIA
     Dosage: UNK
     Route: 048

REACTIONS (2)
  - Intentional drug misuse [Recovered/Resolved]
  - Drug withdrawal syndrome [Unknown]
